FAERS Safety Report 24044897 (Version 1)
Quarter: 2024Q3

REPORT INFORMATION
  Report Type: Report from Study
  Country: JP (occurrence: JP)
  Receive Date: 20240703
  Receipt Date: 20240703
  Transmission Date: 20241017
  Serious: Yes (Other)
  Sender: ACCORD
  Company Number: JP-Accord-432547

PATIENT
  Age: 78 Year
  Sex: Male

DRUGS (2)
  1. CARBOPLATIN [Suspect]
     Active Substance: CARBOPLATIN
     Indication: Adenosquamous cell lung cancer stage III
  2. PACLITAXEL [Suspect]
     Active Substance: PACLITAXEL
     Indication: Adenosquamous cell lung cancer stage III

REACTIONS (1)
  - Pneumonitis [Unknown]
